FAERS Safety Report 11069133 (Version 3)
Quarter: 2015Q3

REPORT INFORMATION
  Report Type: Report from Study
  Country: CA (occurrence: CA)
  Receive Date: 20150427
  Receipt Date: 20150917
  Transmission Date: 20151125
  Serious: Yes (Hospitalization)
  Sender: FDA-Public Use
  Company Number: PHHY2014CA136385

PATIENT
  Age: 80 Year
  Sex: Male

DRUGS (5)
  1. BRILINTA [Concomitant]
     Active Substance: TICAGRELOR
     Indication: PRODUCT USED FOR UNKNOWN INDICATION
     Dosage: UNK
     Route: 065
     Dates: end: 201506
  2. SANDOSTATIN LAR DEPOT [Suspect]
     Active Substance: OCTREOTIDE ACETATE
     Indication: GASTROINTESTINAL ANGIODYSPLASIA
     Dosage: 20 MG, QMO
     Route: 030
     Dates: start: 20141005, end: 20150629
  3. SANDOSTATIN [Suspect]
     Active Substance: OCTREOTIDE ACETATE
     Indication: GASTROINTESTINAL ANGIODYSPLASIA
     Dosage: 50 UG, BID
     Route: 058
     Dates: start: 201406, end: 201407
  4. ASA [Concomitant]
     Active Substance: ASPIRIN
     Indication: ANAEMIA
     Route: 065
  5. IRON [Concomitant]
     Active Substance: IRON
     Indication: ANAEMIA
     Route: 065

REACTIONS (6)
  - Diarrhoea [Recovered/Resolved]
  - Injection site pain [Recovering/Resolving]
  - Abdominal pain upper [Recovered/Resolved]
  - Prostatic disorder [Unknown]
  - Diarrhoea [Not Recovered/Not Resolved]
  - Off label use [Unknown]

NARRATIVE: CASE EVENT DATE: 2014
